FAERS Safety Report 11437785 (Version 7)
Quarter: 2015Q4

REPORT INFORMATION
  Report Type: Spontaneous
  Country: US (occurrence: US)
  Receive Date: 20150831
  Receipt Date: 20151123
  Transmission Date: 20160304
  Serious: Yes (Hospitalization, Disabling, Other)
  Sender: FDA-Public Use
  Company Number: US-009507513-1204USA00497

PATIENT
  Sex: Female

DRUGS (7)
  1. FOSAMAX [Suspect]
     Active Substance: ALENDRONATE SODIUM
     Dosage: 70 MG, QW
     Route: 048
     Dates: start: 200005, end: 200804
  2. ALENDRONATE SODIUM. [Suspect]
     Active Substance: ALENDRONATE SODIUM
     Indication: OSTEOPENIA
  3. CITRACAL [Concomitant]
     Active Substance: CALCIUM CITRATE
     Indication: PRODUCT USED FOR UNKNOWN INDICATION
     Dosage: 1200 MG, UNKNOWN
     Route: 048
     Dates: start: 1995
  4. ALENDRONATE SODIUM. [Suspect]
     Active Substance: ALENDRONATE SODIUM
     Indication: OSTEOPOROSIS
     Dosage: 70 MG, UNKNOWN
     Route: 048
     Dates: start: 200803, end: 201101
  5. ALENDRONATE SODIUM. [Suspect]
     Active Substance: ALENDRONATE SODIUM
     Indication: OSTEOPENIA
  6. CITRACAL [Concomitant]
     Active Substance: CALCIUM CITRATE
     Dosage: UNK UNK, UNKNOWN
     Route: 048
     Dates: start: 1995
  7. ALENDRONATE SODIUM. [Suspect]
     Active Substance: ALENDRONATE SODIUM
     Indication: OSTEOPOROSIS
     Dosage: 70 MG, UNKNOWN
     Route: 048
     Dates: start: 200803, end: 201101

REACTIONS (33)
  - Fall [Unknown]
  - Anaemia [Unknown]
  - Fall [Unknown]
  - Iron deficiency anaemia [Recovered/Resolved]
  - Sleep disorder [Unknown]
  - Back pain [Not Recovered/Not Resolved]
  - Femur fracture [Recovered/Resolved]
  - Tendon sheath incision [Unknown]
  - Muscular weakness [Unknown]
  - Cellulitis [Unknown]
  - Pain in extremity [Unknown]
  - Pain in extremity [Unknown]
  - Blood cholesterol increased [Unknown]
  - Paraesthesia [Unknown]
  - Low turnover osteopathy [Unknown]
  - Hysteroscopy [Unknown]
  - Tendon sheath incision [Unknown]
  - Fall [Unknown]
  - Pain in extremity [Unknown]
  - Fracture [Unknown]
  - Osteoporosis [Unknown]
  - Femur fracture [Unknown]
  - Pain in extremity [Recovered/Resolved]
  - Bone disorder [Unknown]
  - Gallbladder disorder [Unknown]
  - Carpal tunnel decompression [Unknown]
  - Spinal osteoarthritis [Unknown]
  - Peptic ulcer [Unknown]
  - Impaired healing [Recovered/Resolved]
  - Hypertension [Unknown]
  - Intervertebral disc degeneration [Unknown]
  - Mitral valve prolapse [Unknown]
  - Gastrooesophageal reflux disease [Unknown]

NARRATIVE: CASE EVENT DATE: 20001130
